FAERS Safety Report 24335913 (Version 1)
Quarter: 2024Q3

REPORT INFORMATION
  Report Type: Report from Study
  Country: ID (occurrence: ID)
  Receive Date: 20240919
  Receipt Date: 20240919
  Transmission Date: 20241016
  Serious: No
  Sender: ROCHE
  Company Number: ID-ROCHE-3427246

PATIENT
  Age: 26 Year
  Sex: Male

DRUGS (11)
  1. OSELTAMIVIR [Suspect]
     Active Substance: OSELTAMIVIR
     Indication: COVID-19
     Route: 065
  2. KLOROKINFOSFAT [Concomitant]
  3. LANSOPRAZOLE [Concomitant]
     Active Substance: LANSOPRAZOLE
  4. PARASETAMOL [Concomitant]
  5. DIMETHICONE [Concomitant]
     Active Substance: DIMETHICONE
  6. ACETYLCYSTEINE [Concomitant]
     Active Substance: ACETYLCYSTEINE
  7. ZINC [Concomitant]
     Active Substance: ZINC
  8. AZITROMISIN [Concomitant]
  9. VITAMIN C [Concomitant]
     Active Substance: ASCORBIC ACID
  10. POVIDONE-IODINE [Concomitant]
     Active Substance: POVIDONE-IODINE
  11. DOMPERIDONE [Concomitant]
     Active Substance: DOMPERIDONE

REACTIONS (3)
  - Off label use [Unknown]
  - Nausea [Unknown]
  - Peptic ulcer [Unknown]
